FAERS Safety Report 21473586 (Version 1)
Quarter: 2022Q4

REPORT INFORMATION
  Report Type: Report from Study
  Country: US (occurrence: US)
  Receive Date: 20221018
  Receipt Date: 20221018
  Transmission Date: 20230113
  Serious: No
  Sender: FDA-Public Use
  Company Number: US-ABBVIE-4139217

PATIENT
  Sex: Male

DRUGS (8)
  1. VENCLEXTA [Suspect]
     Active Substance: VENETOCLAX
     Indication: Chronic lymphocytic leukaemia
     Route: 048
  2. Gazyva Intravenous Solution 1000 MG [Concomitant]
     Indication: Product used for unknown indication
  3. valacyclovir HCL Oral Tablet 500 MG [Concomitant]
     Indication: Product used for unknown indication
     Route: 048
  4. PREDNISONE [Concomitant]
     Active Substance: PREDNISONE
     Indication: Product used for unknown indication
  5. Advil Oral Tablet 200 MG [Concomitant]
     Indication: Product used for unknown indication
     Route: 048
  6. Doxycycline Monohydrate Oral Tablet [Concomitant]
     Indication: Product used for unknown indication
     Route: 048
  7. Cefpodoxime Proxetil Oral Tablet 20 [Concomitant]
     Indication: Product used for unknown indication
     Dosage: 20
     Route: 048
  8. CEFUROXIME [Concomitant]
     Active Substance: CEFUROXIME
     Indication: Product used for unknown indication

REACTIONS (2)
  - Neck pain [Not Recovered/Not Resolved]
  - Burning sensation [Unknown]
